FAERS Safety Report 11640199 (Version 1)
Quarter: 2015Q4

REPORT INFORMATION
  Report Type: Spontaneous
  Country: US (occurrence: US)
  Receive Date: 20151019
  Receipt Date: 20151019
  Transmission Date: 20160304
  Serious: No
  Sender: FDA-Public Use
  Company Number: US-BIOGENIDEC-2015BI139101

PATIENT
  Sex: Female

DRUGS (1)
  1. AVONEX [Suspect]
     Active Substance: INTERFERON BETA-1A
     Indication: MULTIPLE SCLEROSIS
     Route: 030
     Dates: start: 20021016, end: 20090618

REACTIONS (7)
  - Fear of injection [Recovered/Resolved]
  - Tremor [Recovered/Resolved]
  - Wrong technique in product usage process [Recovered/Resolved]
  - Influenza like illness [Recovered/Resolved]
  - Mobility decreased [Recovered/Resolved]
  - Weight decreased [Recovered/Resolved]
  - Feeling of body temperature change [Recovered/Resolved]
